FAERS Safety Report 4454327-8 (Version None)
Quarter: 2004Q3

REPORT INFORMATION
  Report Type: 
  Country: None (occurrence: None)
  Receive Date: 20040916
  Receipt Date: 20040916
  Transmission Date: 20050211
  Serious: Yes (Death)
  Sender: FDA-Public Use
  Company Number: None

PATIENT
  Age: 58 Year
  Sex: Male
  Weight: 85.2762 kg

DRUGS (3)
  1. VIOXX [Suspect]
     Indication: SPINAL COLUMN STENOSIS
     Dosage: 25 MG ORALLY 1 TAB DAILY
     Route: 048
  2. CARDIA XT [Concomitant]
  3. DYAZIDE [Concomitant]

REACTIONS (1)
  - ARTERIOSCLEROSIS [None]
